FAERS Safety Report 21079697 (Version 2)
Quarter: 2023Q1

REPORT INFORMATION
  Report Type: Report from Study
  Country: PT (occurrence: None)
  Receive Date: 20220714
  Receipt Date: 20230118
  Transmission Date: 20230417
  Serious: Yes (Other)
  Sender: FDA-Public Use
  Company Number: PT-Merck Healthcare KGaA-9289019

PATIENT
  Sex: Female

DRUGS (1)
  1. REBIF [Suspect]
     Active Substance: INTERFERON BETA-1A
     Indication: Multiple sclerosis
     Route: 058
     Dates: start: 20170601

REACTIONS (8)
  - Autoimmune disorder [Unknown]
  - Skin lesion [Unknown]
  - Pruritus [Unknown]
  - Injection site erythema [Recovering/Resolving]
  - Memory impairment [Unknown]
  - Lack of injection site rotation [Unknown]
  - Product dose omission issue [Unknown]
  - Treatment noncompliance [Unknown]
